FAERS Safety Report 10432685 (Version 1)
Quarter: 2014Q3

REPORT INFORMATION
  Report Type: Spontaneous
  Country: GB (occurrence: GB)
  Receive Date: 20140905
  Receipt Date: 20140905
  Transmission Date: 20150326
  Serious: Yes (Other)
  Sender: FDA-Public Use
  Company Number: GB-ASTRAZENECA-2014SE65528

PATIENT
  Age: 62 Year
  Sex: Male

DRUGS (3)
  1. CLARITHROMYCIN. [Concomitant]
     Active Substance: CLARITHROMYCIN
  2. DALTEPARIN [Concomitant]
     Active Substance: DALTEPARIN
  3. MERONEM [Suspect]
     Active Substance: MEROPENEM
     Indication: INFECTION
     Route: 042

REACTIONS (2)
  - Intentional product misuse [Unknown]
  - Vision blurred [Not Recovered/Not Resolved]
